FAERS Safety Report 19888720 (Version 2)
Quarter: 2021Q4

REPORT INFORMATION
  Report Type: Spontaneous
  Country: US (occurrence: US)
  Receive Date: 20210927
  Receipt Date: 20211026
  Transmission Date: 20220303
  Serious: Yes (Death, Other)
  Sender: FDA-Public Use
  Company Number: US-TEVA-2021-US-1958722

PATIENT
  Age: 56 Year
  Sex: Female
  Weight: 85.7 kg

DRUGS (13)
  1. VALSARTAN [Suspect]
     Active Substance: VALSARTAN
     Indication: Hypertension
     Route: 065
     Dates: start: 20151112, end: 20160413
  2. VALSARTAN [Suspect]
     Active Substance: VALSARTAN
     Route: 065
     Dates: start: 20151208, end: 20160210
  3. VALSARTAN [Suspect]
     Active Substance: VALSARTAN
     Indication: Hypertension
     Route: 065
     Dates: start: 20150119, end: 20150320
  4. VALSARTAN [Suspect]
     Active Substance: VALSARTAN
     Indication: Hypertension
     Route: 065
     Dates: start: 20150413, end: 20150712
  5. VALSARTAN [Suspect]
     Active Substance: VALSARTAN
     Route: 065
     Dates: start: 20180607, end: 20180707
  6. VALSARTAN [Suspect]
     Active Substance: VALSARTAN
     Indication: Hypertension
     Route: 065
     Dates: start: 20150616, end: 20150812
  7. VALSARTAN [Suspect]
     Active Substance: VALSARTAN
     Indication: Hypertension
     Route: 065
     Dates: start: 20160311, end: 20170517
  8. VALSARTAN [Suspect]
     Active Substance: VALSARTAN
     Route: 065
     Dates: start: 20160809, end: 20170517
  9. VALSARTAN [Suspect]
     Active Substance: VALSARTAN
     Indication: Hypertension
     Route: 065
     Dates: start: 20160809, end: 20170517
  10. VALSARTAN [Suspect]
     Active Substance: VALSARTAN
     Route: 065
     Dates: start: 20170811, end: 20171220
  11. VALSARTAN [Suspect]
     Active Substance: VALSARTAN
     Route: 065
     Dates: start: 20180502, end: 20180810
  12. AMLODIPINE [Concomitant]
     Active Substance: AMLODIPINE BESYLATE
     Indication: Hypertension
     Route: 065
  13. ROSUVASTATIN [Concomitant]
     Active Substance: ROSUVASTATIN
     Indication: Hyperlipidaemia
     Route: 065

REACTIONS (2)
  - Hepatic cancer [Fatal]
  - Cholangiocarcinoma [Unknown]
